FAERS Safety Report 13410165 (Version 1)
Quarter: 2017Q2

REPORT INFORMATION
  Report Type: Spontaneous
  Country: US (occurrence: US)
  Receive Date: 20170406
  Receipt Date: 20170406
  Transmission Date: 20170830
  Serious: Yes (Life-Threatening, Congenital Anomaly, Other)
  Sender: FDA-Public Use
  Company Number: PHHY2015US131998

PATIENT
  Sex: Female

DRUGS (2)
  1. ZOFRAN [Suspect]
     Active Substance: ONDANSETRON HYDROCHLORIDE
     Indication: FOETAL EXPOSURE DURING PREGNANCY
     Dosage: MOTHER^S DOSE: 4 MG
     Route: 064
  2. ZOFRAN [Suspect]
     Active Substance: ONDANSETRON HYDROCHLORIDE
     Indication: FOETAL EXPOSURE DURING PREGNANCY
     Route: 064

REACTIONS (37)
  - Shone complex [Unknown]
  - Left ventricular hypertrophy [Unknown]
  - Neonatal respiratory failure [Unknown]
  - Pleural effusion [Unknown]
  - Hypermetropia [Unknown]
  - Patent ductus arteriosus [Unknown]
  - Conjunctivitis [Unknown]
  - Gastrooesophageal reflux disease [Unknown]
  - Lung hyperinflation [Unknown]
  - Vision blurred [Unknown]
  - Umbilical malformation [Unknown]
  - Dysphagia [Unknown]
  - Dyspnoea [Unknown]
  - Hypoplastic left heart syndrome [Unknown]
  - Bicuspid aortic valve [Unknown]
  - Laevocardia [Unknown]
  - Aortic valve incompetence [Unknown]
  - Pulmonary oedema [Unknown]
  - Nasal congestion [Unknown]
  - Transient tachypnoea of the newborn [Unknown]
  - Right aortic arch [Unknown]
  - Gastric dilatation [Unknown]
  - Oropharyngeal pain [Unknown]
  - Bronchitis [Unknown]
  - Rash [Unknown]
  - Congenital mitral valve stenosis [Unknown]
  - Foetal exposure during pregnancy [Unknown]
  - Thymus disorder [Unknown]
  - Heart disease congenital [Unknown]
  - Coarctation of the aorta [Unknown]
  - Congenital aortic valve stenosis [Unknown]
  - Cystic lymphangioma [Unknown]
  - Astigmatism [Unknown]
  - Atelectasis neonatal [Unknown]
  - Upper respiratory tract infection [Unknown]
  - Pharyngitis [Unknown]
  - Cardiac murmur [Unknown]

NARRATIVE: CASE EVENT DATE: 2007
